FAERS Safety Report 7803172-1 (Version None)
Quarter: 2011Q4

REPORT INFORMATION
  Report Type: 
  Country: None (occurrence: None)
  Receive Date: 20111007
  Receipt Date: 20110928
  Transmission Date: 20120403
  Serious: Yes (Other)
  Sender: FDA-Public Use
  Company Number: MX-UCBSA-042574

PATIENT
  Age: 25 Year
  Sex: Female
  Weight: 80 kg

DRUGS (3)
  1. TEGRETOL [Concomitant]
     Indication: EPILEPSY
     Route: 048
     Dates: start: 20010101
  2. VALPROATE SODIUM [Concomitant]
     Indication: EPILEPSY
     Route: 048
     Dates: start: 20010101
  3. VIMPAT [Suspect]
     Indication: EPILEPSY
     Route: 048
     Dates: start: 20110201, end: 20110201

REACTIONS (3)
  - MALAISE [None]
  - DIZZINESS [None]
  - HALLUCINATION [None]
